FAERS Safety Report 20720881 (Version 1)
Quarter: 2022Q2

REPORT INFORMATION
  Report Type: Report from Study
  Country: FR (occurrence: FR)
  Receive Date: 20220418
  Receipt Date: 20220418
  Transmission Date: 20220721
  Serious: Yes (Hospitalization, Other)
  Sender: FDA-Public Use
  Company Number: FR-TAKEDA-2022TUS024698

PATIENT
  Age: 53 Year
  Sex: Male
  Weight: 72 kg

DRUGS (2)
  1. MARIBAVIR [Suspect]
     Active Substance: MARIBAVIR
     Indication: Cytomegalovirus infection
     Dosage: UNK
     Route: 065
     Dates: start: 20220216
  2. CYTOTEC [Concomitant]
     Active Substance: MISOPROSTOL
     Indication: Cytomegalovirus infection
     Dosage: 4 MILLILITRE PER KILOGRAM, 2/WEEK
     Route: 065
     Dates: start: 20220210

REACTIONS (1)
  - Aspergillus infection [Unknown]
